FAERS Safety Report 8940283 (Version 1)
Quarter: 2012Q4

REPORT INFORMATION
  Report Type: 
  Country: US (occurrence: US)
  Receive Date: 20121121
  Receipt Date: 20121121
  Transmission Date: 20130627
  Serious: Yes (Death, Other)
  Sender: FDA-Public Use
  Company Number: US-ASTELLAS-CID000000002100657

PATIENT
  Sex: Male

DRUGS (5)
  1. AVASTIN [Suspect]
     Indication: PANCREATIC CARCINOMA
     Route: 065
  2. TARCEVA [Suspect]
     Indication: PRODUCT USED FOR UNKNOWN INDICATION
     Route: 065
  3. XELODA [Suspect]
     Indication: PRODUCT USED FOR UNKNOWN INDICATION
     Route: 065
  4. GEMZAR [Concomitant]
  5. OXALIPLATIN [Concomitant]

REACTIONS (5)
  - Death [Fatal]
  - Disease progression [Unknown]
  - Malignant ascites [Unknown]
  - Pain [Unknown]
  - Decreased appetite [Unknown]
